FAERS Safety Report 13579081 (Version 1)
Quarter: 2017Q2

REPORT INFORMATION
  Report Type: Spontaneous
  Country: CZ (occurrence: CZ)
  Receive Date: 20170525
  Receipt Date: 20170525
  Transmission Date: 20170830
  Serious: Yes (Death, Other)
  Sender: FDA-Public Use
  Company Number: CZ-CELGENEUS-CZE-20170504280

PATIENT

DRUGS (4)
  1. POMALIDOMIDE [Suspect]
     Active Substance: POMALIDOMIDE
     Indication: PLASMA CELL MYELOMA
     Dosage: 3 MILLIGRAM
     Route: 048
  2. SUMETROLIM [Concomitant]
     Indication: PROPHYLAXIS
     Route: 065
  3. DEXAMETHASONE. [Concomitant]
     Active Substance: DEXAMETHASONE
     Indication: PLASMA CELL MYELOMA
     Route: 065
  4. HEPARIN [Concomitant]
     Active Substance: HEPARIN SODIUM
     Indication: THROMBOSIS PROPHYLAXIS
     Dosage: 480 MILLIGRAM
     Route: 065

REACTIONS (14)
  - Asthenia [Fatal]
  - Neuropathy peripheral [Unknown]
  - Fatigue [Fatal]
  - Thrombosis [Fatal]
  - Vomiting [Unknown]
  - Nausea [Unknown]
  - Anaemia [Fatal]
  - Neutropenia [Fatal]
  - Decreased appetite [Fatal]
  - Diarrhoea [Unknown]
  - Thrombocytopenia [Fatal]
  - Infection [Fatal]
  - Embolism [Fatal]
  - Constipation [Unknown]
